FAERS Safety Report 8206823-5 (Version None)
Quarter: 2012Q1

REPORT INFORMATION
  Report Type: 
  Country: None (occurrence: None)
  Receive Date: 20120314
  Receipt Date: 20120303
  Transmission Date: 20120608
  Serious: Yes (Other)
  Sender: FDA-Public Use
  Company Number: ES-PAR PHARMACEUTICAL, INC-2012SCPR004268

PATIENT

DRUGS (2)
  1. IBUPROFEN TABLETS [Suspect]
     Indication: HEADACHE
     Dosage: UNK, UNKNOWN
     Route: 065
  2. IBUPROFEN TABLETS [Suspect]
     Dosage: UNK, UNKNOWN
     Route: 048

REACTIONS (2)
  - ACCIDENTAL EXPOSURE [None]
  - ANAPHYLACTIC REACTION [None]
